FAERS Safety Report 8274280-9 (Version None)
Quarter: 2012Q2

REPORT INFORMATION
  Report Type: 
  Country: None (occurrence: None)
  Receive Date: 20120411
  Receipt Date: 20120411
  Transmission Date: 20120825
  Serious: Yes (Other)
  Sender: FDA-Public Use
  Company Number: None

PATIENT
  Age: 66 Year
  Sex: Female
  Weight: 81.646 kg

DRUGS (1)
  1. SERTRALINE -GENERIC FOR ZOLOFT- [Suspect]
     Indication: DEPRESSION
     Dosage: 300 MG
     Route: 048
     Dates: start: 20120126, end: 20120410

REACTIONS (2)
  - DEPRESSION [None]
  - DISEASE RECURRENCE [None]
